FAERS Safety Report 21575172 (Version 1)
Quarter: 2022Q4

REPORT INFORMATION
  Report Type: Other
  Country: CA (occurrence: CA)
  Receive Date: 20221110
  Receipt Date: 20221110
  Transmission Date: 20230112
  Serious: Yes (Death, Other)
  Sender: FDA-Public Use
  Company Number: CA-CELLTRION INC.-2022CA018683

PATIENT

DRUGS (11)
  1. RITUXIMAB [Suspect]
     Active Substance: RITUXIMAB
     Indication: Rheumatoid arthritis
     Dosage: 1000 MILLIGRAM
     Route: 041
  2. AMLODIPINE [Concomitant]
     Active Substance: AMLODIPINE BESYLATE
     Indication: Hypertension
     Route: 065
  3. BENADRYL [Concomitant]
     Active Substance: DIPHENHYDRAMINE HYDROCHLORIDE
     Dosage: 50 MILLIGRAM
     Route: 048
  4. CLONAZEPAM [Concomitant]
     Active Substance: CLONAZEPAM
  5. EPOETIN ALFA [Concomitant]
     Active Substance: ERYTHROPOIETIN
  6. METHYLPREDNISOLONE SODIUM SUCCINATE [Concomitant]
     Active Substance: METHYLPREDNISOLONE SODIUM SUCCINATE
     Indication: Premedication
     Dosage: 1000 MILLIGRAM
     Route: 065
  7. METOPROLOL [Concomitant]
     Active Substance: METOPROLOL
  8. PANTOPRAZOLE [Concomitant]
     Active Substance: PANTOPRAZOLE
  9. PREDNISONE [Concomitant]
     Active Substance: PREDNISONE
     Dosage: 7.5 MILLIGRAM
     Route: 065
  10. SULFASALAZINE [Concomitant]
     Active Substance: SULFASALAZINE
  11. VITAMIN D3 [Concomitant]
     Active Substance: CHOLECALCIFEROL

REACTIONS (1)
  - Death [Fatal]
